FAERS Safety Report 6464776-4 (Version None)
Quarter: 2009Q4

REPORT INFORMATION
  Report Type: 
  Country: None (occurrence: None)
  Receive Date: 20091201
  Receipt Date: 20091118
  Transmission Date: 20100525
  Serious: Yes (Hospitalization)
  Sender: FDA-Public Use
  Company Number: PHHY2009FR51010

PATIENT
  Sex: Female

DRUGS (6)
  1. VALSARTAN AND HYDROCHLOROTHIAZIDE [Suspect]
     Indication: HYPERTENSION
     Dosage: 1 DF, QD
     Route: 048
     Dates: end: 20090923
  2. VASTAREL [Suspect]
     Indication: DIZZINESS
     Dosage: 2 DF, QD
     Route: 048
     Dates: end: 20090923
  3. OLMIFON [Suspect]
     Dosage: UNK
     Route: 048
     Dates: end: 20090923
  4. STABLON [Concomitant]
     Indication: DEPRESSION
     Dosage: 1 DF, QD
     Route: 048
  5. STILNOX [Concomitant]
     Indication: INSOMNIA
     Dosage: 0.5 DF, QD
     Route: 048
  6. DULCOLAX [Concomitant]
     Indication: CONSTIPATION
     Dosage: UNK
     Route: 048

REACTIONS (19)
  - ARRHYTHMIA [None]
  - ARTERIAL DISORDER [None]
  - ATRIAL FIBRILLATION [None]
  - BLOOD CREATININE INCREASED [None]
  - BLOOD UREA INCREASED [None]
  - CEREBRAL ISCHAEMIA [None]
  - CREATININE RENAL CLEARANCE DECREASED [None]
  - ELECTROCARDIOGRAM QRS COMPLEX SHORTENED [None]
  - FALL [None]
  - HAEMATOMA [None]
  - HEAD INJURY [None]
  - HYPERTENSION [None]
  - LOSS OF CONSCIOUSNESS [None]
  - OPEN WOUND [None]
  - ORTHOSTATIC HYPOTENSION [None]
  - PERIORBITAL HAEMATOMA [None]
  - RENAL IMPAIRMENT [None]
  - SUBDURAL HAEMATOMA [None]
  - TACHYCARDIA [None]
